FAERS Safety Report 6133548-2 (Version None)
Quarter: 2009Q1

REPORT INFORMATION
  Report Type: 
  Country: None (occurrence: None)
  Receive Date: 20090326
  Receipt Date: 20090320
  Transmission Date: 20090719
  Serious: Yes (Other)
  Sender: FDA-Public Use
  Company Number: GB-ROCHE-617764

PATIENT
  Age: 38 Year
  Sex: Female

DRUGS (13)
  1. ENFUVIRTIDE [Suspect]
     Dosage: DRUG ALSO REPORTED AS T20
     Route: 058
  2. NELFINAVIR [Suspect]
     Route: 065
  3. ZIDOVUDINE [Suspect]
     Route: 065
  4. LAMIVUDINE [Suspect]
     Route: 065
  5. TENOFOVIR [Suspect]
     Route: 065
  6. DIDANOSINE [Suspect]
     Route: 065
  7. EFAVIRENZ [Suspect]
     Route: 065
  8. NEVIRAPINE [Suspect]
     Route: 065
  9. LOPINAVIR [Suspect]
     Route: 065
  10. EMTRICITABINE/TENOFOVIR [Suspect]
     Dosage: DRUG REPORTED AS TRUVADA, AS BACKGROUND THERAPY
     Route: 065
  11. DARUNAVIR [Suspect]
     Route: 065
  12. RITONAVIR [Suspect]
     Route: 065
  13. ETRAVIRINE [Suspect]
     Dosage: VIA COMPASSIONATE RELEASE PROGRAM
     Route: 065

REACTIONS (4)
  - ANAEMIA [None]
  - BLOOD TRIGLYCERIDES INCREASED [None]
  - HIV INFECTION [None]
  - INJECTION SITE REACTION [None]
